FAERS Safety Report 8462165-4 (Version None)
Quarter: 2012Q2

REPORT INFORMATION
  Report Type: 
  Country: None (occurrence: None)
  Receive Date: 20120625
  Receipt Date: 20120613
  Transmission Date: 20120825
  Serious: Yes (Hospitalization)
  Sender: FDA-Public Use
  Company Number: JP-NOVOPROD-350427

PATIENT
  Age: 67 Year
  Sex: Female
  Weight: 44 kg

DRUGS (4)
  1. VICTOZA [Suspect]
     Indication: TYPE 2 DIABETES MELLITUS
     Dosage: 0.3 MG, QD
     Route: 058
     Dates: start: 20120419, end: 20120422
  2. HUMALOG [Concomitant]
     Indication: TYPE 2 DIABETES MELLITUS
     Dosage: 16 U, QD
     Route: 058
  3. CANDESARTAN CILEXETIL [Concomitant]
     Route: 048
  4. NOVOLIN R [Concomitant]
     Indication: TYPE 2 DIABETES MELLITUS
     Dosage: 12 U, QD
     Route: 058

REACTIONS (1)
  - DIABETIC HYPEROSMOLAR COMA [None]
